FAERS Safety Report 23299658 (Version 1)
Quarter: 2023Q4

REPORT INFORMATION
  Report Type: Spontaneous
  Country: US (occurrence: US)
  Receive Date: 20231215
  Receipt Date: 20231215
  Transmission Date: 20240110
  Serious: No
  Sender: FDA-Public Use
  Company Number: US-002147023-NVSC2023US265187

PATIENT
  Sex: Male

DRUGS (1)
  1. XIIDRA [Suspect]
     Active Substance: LIFITEGRAST
     Indication: Product used for unknown indication
     Dosage: 5 % (2X DAILY)
     Route: 047

REACTIONS (3)
  - Vision blurred [Unknown]
  - Product use complaint [Unknown]
  - Accidental exposure to product [Unknown]
